FAERS Safety Report 23992818 (Version 1)
Quarter: 2024Q2

REPORT INFORMATION
  Report Type: Spontaneous
  Country: US (occurrence: US)
  Receive Date: 20240620
  Receipt Date: 20240620
  Transmission Date: 20240715
  Serious: No
  Sender: FDA-Public Use
  Company Number: US-009507513-2405USA007345

PATIENT
  Sex: Male
  Weight: 75.692 kg

DRUGS (4)
  1. KEYTRUDA [Suspect]
     Active Substance: PEMBROLIZUMAB
     Indication: Head and neck cancer
  2. LENVATINIB MESYLATE [Suspect]
     Active Substance: LENVATINIB MESYLATE
     Indication: Head and neck cancer
     Dosage: 20 MILLIGRAM, DAILY (QD)
     Route: 048
  3. LENVATINIB MESYLATE [Suspect]
     Active Substance: LENVATINIB MESYLATE
     Dosage: 16 MILLIGRAM, DAILY (QD)
     Route: 048
     Dates: end: 202404
  4. LENVATINIB MESYLATE [Suspect]
     Active Substance: LENVATINIB MESYLATE
     Dosage: 12 MILLIGRAM, DAILY (QD)
     Route: 048
     Dates: start: 20240512

REACTIONS (2)
  - Rash [Recovering/Resolving]
  - Product use issue [Unknown]
